FAERS Safety Report 4349108-X (Version None)
Quarter: 2004Q2

REPORT INFORMATION
  Report Type: 
  Country: None (occurrence: None)
  Receive Date: 20040427
  Receipt Date: 20040427
  Transmission Date: 20050107
  Serious: Yes (Hospitalization)
  Sender: FDA-Public Use
  Company Number: None

PATIENT
  Sex: Male

DRUGS (10)
  1. WARFARIN SODIUM [Suspect]
     Indication: DEEP VEIN THROMBOSIS
     Dosage: 5 MG M/W/F ORAL
     Route: 048
  2. WARFARIN SODIUM [Suspect]
     Indication: DEEP VEIN THROMBOSIS
     Dosage: 2.5 MG ALL OTHER ORAL
     Route: 048
  3. CLONAZEPAM [Concomitant]
  4. CALCIUM [Concomitant]
  5. DOCUSATE [Concomitant]
  6. CITALOPRAM [Concomitant]
  7. THIAMINE [Concomitant]
  8. FOLATE [Concomitant]
  9. RABEPRAZOLE SODIUM [Concomitant]
  10. QUETIAPINE [Concomitant]

REACTIONS (2)
  - GROIN PAIN [None]
  - MUSCLE HAEMORRHAGE [None]
